FAERS Safety Report 7095153-3 (Version None)
Quarter: 2010Q4

REPORT INFORMATION
  Report Type: 
  Country: None (occurrence: None)
  Receive Date: 20101109
  Receipt Date: 20101109
  Transmission Date: 20110411
  Serious: Yes (Life-Threatening)
  Sender: FDA-Public Use
  Company Number: None

PATIENT
  Age: 61 Year
  Sex: Male
  Weight: 68.0396 kg

DRUGS (1)
  1. BONIVA [Suspect]
     Indication: BONE DENSITY ABNORMAL
     Dosage: 150MG TABLET ONCE-MONTHLY OTHER
     Route: 050
     Dates: start: 20101103, end: 20101104

REACTIONS (6)
  - ARTHRALGIA [None]
  - BACK PAIN [None]
  - CHEST PAIN [None]
  - DYSPNOEA [None]
  - INFLUENZA LIKE ILLNESS [None]
  - MYALGIA [None]
